FAERS Safety Report 6139729-6 (Version None)
Quarter: 2009Q2

REPORT INFORMATION
  Report Type: 
  Country: None (occurrence: None)
  Receive Date: 20090401
  Receipt Date: 20090326
  Transmission Date: 20091009
  Serious: Yes (Death, Other)
  Sender: FDA-Public Use
  Company Number: ES-CELGENEUS-144-50794-09031852

PATIENT
  Age: 72 Year
  Sex: Male

DRUGS (4)
  1. VIDAZA [Suspect]
     Indication: MYELODYSPLASTIC SYNDROME
     Route: 058
     Dates: start: 20060403
  2. VIDAZA [Suspect]
     Route: 058
     Dates: end: 20080717
  3. RAMIPRIL [Concomitant]
     Indication: DRUG USE FOR UNKNOWN INDICATION
     Route: 065
  4. FUROSEMIDE [Concomitant]
     Indication: DRUG USE FOR UNKNOWN INDICATION
     Dosage: 160-200 MG
     Route: 048

REACTIONS (9)
  - CELLULITIS [None]
  - CONSTIPATION [None]
  - DEATH [None]
  - DEPRESSION [None]
  - DISEASE PROGRESSION [None]
  - GASTROINTESTINAL FUNGAL INFECTION [None]
  - LOWER RESPIRATORY TRACT INFECTION FUNGAL [None]
  - SKIN REACTION [None]
  - URINARY TRACT INFECTION [None]
